FAERS Safety Report 8679978 (Version 2)
Quarter: 2012Q4

REPORT INFORMATION
  Report Type: 
  Country: CN (occurrence: CN)
  Receive Date: 20120724
  Receipt Date: 20120827
  Transmission Date: 20130627
  Serious: Yes (Other)
  Sender: FDA-Public Use
  Company Number: CN-BAYER-2012-071350

PATIENT
  Sex: Male

DRUGS (3)
  1. ASPIRIN N [Suspect]
     Indication: ISCHAEMIC HEART DISEASE PROPHYLAXIS
     Dosage: 81 mg, QD
     Route: 048
     Dates: start: 201207
  2. GLUCOBAY [Concomitant]
  3. BAYASPIRIN (BAIASIPILING) [Concomitant]
     Dosage: 100 mg, QD

REACTIONS (1)
  - Ecchymosis [Recovered/Resolved]
